FAERS Safety Report 10614175 (Version 1)
Quarter: 2014Q4

REPORT INFORMATION
  Report Type: Spontaneous
  Country: US (occurrence: US)
  Receive Date: 20141128
  Receipt Date: 20141128
  Transmission Date: 20150529
  Serious: No
  Sender: FDA-Public Use
  Company Number: US-PFIZER INC-2014327581

PATIENT

DRUGS (9)
  1. XANAX [Suspect]
     Active Substance: ALPRAZOLAM
     Dosage: UNK
  2. TRAMADOL [Suspect]
     Active Substance: TRAMADOL
     Dosage: UNK
  3. LYRICA [Suspect]
     Active Substance: PREGABALIN
     Dosage: UNK
  4. ASHWAGANDHA [Suspect]
     Active Substance: HERBALS
     Dosage: UNK
  5. MAGNESIUM [Suspect]
     Active Substance: MAGNESIUM
     Dosage: UNK
  6. 5-HYDROXYTRYPTOPHAN [Suspect]
     Active Substance: OXITRIPTAN
     Dosage: UNK
  7. ADVIL PM [Suspect]
     Active Substance: DIPHENHYDRAMINE CITRATE\IBUPROFEN
     Dosage: UNK
  8. EPSOM SALT [Suspect]
     Active Substance: MAGNESIUM SULFATE
     Dosage: UNK
  9. SOMA [Suspect]
     Active Substance: CARISOPRODOL
     Dosage: UNK

REACTIONS (1)
  - Drug ineffective [Unknown]
